FAERS Safety Report 9470874 (Version 1)
Quarter: 2013Q3

REPORT INFORMATION
  Report Type: Spontaneous
  Country: US (occurrence: US)
  Receive Date: 20130822
  Receipt Date: 20130822
  Transmission Date: 20140515
  Serious: No
  Sender: FDA-Public Use
  Company Number: US-PFIZER INC-2013242067

PATIENT
  Age: 47 Year
  Sex: Male
  Weight: 88.44 kg

DRUGS (1)
  1. CHANTIX [Suspect]
     Indication: SMOKING CESSATION THERAPY
     Dosage: UNK
     Dates: start: 20130816

REACTIONS (2)
  - Nausea [Unknown]
  - Abdominal discomfort [Unknown]
